FAERS Safety Report 22531463 (Version 2)
Quarter: 2023Q2

REPORT INFORMATION
  Report Type: Report from Study
  Country: FI (occurrence: FI)
  Receive Date: 20230607
  Receipt Date: 20230615
  Transmission Date: 20230722
  Serious: Yes (Hospitalization, Other)
  Sender: FDA-Public Use
  Company Number: FI-MYLANLABS-2023M1058149

PATIENT
  Age: 61 Year
  Sex: Male

DRUGS (10)
  1. CLOZAPINE [Suspect]
     Active Substance: CLOZAPINE
     Indication: Delusional disorder, unspecified type
     Dosage: UNK
     Route: 065
     Dates: start: 20230504, end: 20230517
  2. CLOZAPINE [Suspect]
     Active Substance: CLOZAPINE
     Dosage: 300 MILLIGRAM (50 MG IN THE MORNING AND 250 MG IN THE EVENING
     Route: 065
     Dates: start: 20230518, end: 20230605
  3. TRAMADOL [Concomitant]
     Active Substance: TRAMADOL
     Indication: Restless legs syndrome
     Dosage: UNK
     Route: 065
  4. TRAMADOL [Concomitant]
     Active Substance: TRAMADOL
     Indication: Coronary artery disease
  5. TRAMADOL [Concomitant]
     Active Substance: TRAMADOL
     Indication: Restless legs syndrome
     Dosage: UNK
     Route: 065
  6. TRAMADOL [Concomitant]
     Active Substance: TRAMADOL
     Indication: Coronary artery disease
  7. QUETIAPINE [Concomitant]
     Active Substance: QUETIAPINE
     Indication: Delusional disorder, unspecified type
     Dosage: 200 MILLIGRAM, QD IN THE EVENING
     Route: 065
     Dates: start: 20230504, end: 20230508
  8. ARIPIPRAZOLE [Concomitant]
     Active Substance: ARIPIPRAZOLE
     Indication: Delusional disorder, unspecified type
     Dosage: 20 MILLIGRAM, QD
     Route: 065
     Dates: end: 20230507
  9. ARIPIPRAZOLE [Concomitant]
     Active Substance: ARIPIPRAZOLE
     Dosage: 15 MILLIGRAM, QD IN THE MORNING
     Route: 065
     Dates: start: 20230508, end: 20230514
  10. ARIPIPRAZOLE [Concomitant]
     Active Substance: ARIPIPRAZOLE
     Dosage: 10 MILLIGRAM
     Route: 065
     Dates: start: 20230515, end: 20230517

REACTIONS (21)
  - Myocarditis [Unknown]
  - Pneumonia [Unknown]
  - Electrocardiogram ST segment elevation [Unknown]
  - Leukocytosis [Recovered/Resolved]
  - Hyperhidrosis [Unknown]
  - Procalcitonin increased [Unknown]
  - Brain natriuretic peptide [Recovering/Resolving]
  - pH body fluid increased [Unknown]
  - PCO2 decreased [Unknown]
  - Cardiac disorder [Unknown]
  - Red blood cell sedimentation rate [Unknown]
  - Atelectasis [Unknown]
  - C-reactive protein increased [Recovering/Resolving]
  - Pyrexia [Recovered/Resolved]
  - Troponin I increased [Recovering/Resolving]
  - Eosinophilia [Unknown]
  - Tachycardia [Recovering/Resolving]
  - Blood potassium decreased [Unknown]
  - Asthenia [Unknown]
  - Haemoglobin decreased [Unknown]
  - Off label use [Unknown]

NARRATIVE: CASE EVENT DATE: 20230501
